FAERS Safety Report 17462360 (Version 2)
Quarter: 2025Q2

REPORT INFORMATION
  Report Type: Spontaneous
  Country: IT (occurrence: IT)
  Receive Date: 20200226
  Receipt Date: 20250605
  Transmission Date: 20250717
  Serious: Yes (Other)
  Sender: MYLAN
  Company Number: IT-UCBSA-2020000035

PATIENT

DRUGS (1)
  1. LEVETIRACETAM [Suspect]
     Active Substance: LEVETIRACETAM
     Indication: Juvenile myoclonic epilepsy
     Dosage: 500 MILLIGRAM, QD (250 MILLIGRAM, 2X/DAY (BID))

REACTIONS (1)
  - Generalised tonic-clonic seizure [Unknown]
